FAERS Safety Report 10680897 (Version 2)
Quarter: 2015Q1

REPORT INFORMATION
  Report Type: Spontaneous
  Country: US (occurrence: US)
  Receive Date: 20141229
  Receipt Date: 20150114
  Transmission Date: 20150720
  Serious: Yes (Hospitalization)
  Sender: FDA-Public Use
  Company Number: US-009507513-1412USA012781

PATIENT
  Sex: Female

DRUGS (10)
  1. HEXADROL [Concomitant]
     Active Substance: DEXAMETHASONE
     Dosage: UNK
     Route: 048
  2. HYDROCHLOROTHIAZIDE. [Concomitant]
     Active Substance: HYDROCHLOROTHIAZIDE
     Dosage: UNK
     Route: 048
  3. KEYTRUDA [Concomitant]
     Active Substance: PEMBROLIZUMAB
     Indication: METASTASES TO CENTRAL NERVOUS SYSTEM
     Dosage: UNK, ONCE
     Dates: start: 20141119, end: 20141119
  4. AMLODIPINE [Concomitant]
     Active Substance: AMLODIPINE BESYLATE
     Dosage: UNK
  5. CRESTOR [Concomitant]
     Active Substance: ROSUVASTATIN CALCIUM
     Dosage: UNK
  6. BACTRIM [Concomitant]
     Active Substance: SULFAMETHOXAZOLE\TRIMETHOPRIM
     Dosage: UNK
     Dates: start: 201411, end: 20141126
  7. ATENOLOL. [Concomitant]
     Active Substance: ATENOLOL
     Dosage: UNK
  8. KEYTRUDA [Concomitant]
     Active Substance: PEMBROLIZUMAB
     Indication: METASTATIC MALIGNANT MELANOMA
  9. DECADRON [Suspect]
     Active Substance: DEXAMETHASONE
     Dosage: UNK
  10. KEPPRA [Concomitant]
     Active Substance: LEVETIRACETAM
     Indication: SEIZURE
     Dosage: UNK

REACTIONS (1)
  - Blood glucose increased [Unknown]

NARRATIVE: CASE EVENT DATE: 201412
